FAERS Safety Report 6044085-8 (Version None)
Quarter: 2009Q1

REPORT INFORMATION
  Report Type: 
  Country: None (occurrence: None)
  Receive Date: 20090120
  Receipt Date: 20090116
  Transmission Date: 20090719
  Serious: Yes (Other)
  Sender: FDA-Public Use
  Company Number: B0532179A

PATIENT
  Age: 80 Year
  Sex: Male

DRUGS (7)
  1. SERETIDE [Suspect]
     Indication: ASTHMA
     Dosage: 2PUFF AT NIGHT
     Route: 055
  2. VENTOLIN [Suspect]
     Indication: ASTHMA
     Dosage: 2PUFF AT NIGHT
     Route: 055
  3. UNSPECIFIED INHALER [Suspect]
     Indication: ASTHMA
     Dosage: 2PUFF AT NIGHT
     Route: 055
  4. UNKNOWN [Suspect]
     Indication: DRUG USE FOR UNKNOWN INDICATION
     Route: 065
  5. UNKNOWN [Suspect]
     Indication: HYPERTENSION
     Route: 065
  6. UNKNOWN DRUG [Concomitant]
     Route: 065
  7. BENDROFLUMETHIAZID [Concomitant]
     Route: 065

REACTIONS (6)
  - BLOOD PRESSURE INCREASED [None]
  - CHEST DISCOMFORT [None]
  - DYSPNOEA [None]
  - INFLUENZA [None]
  - LOWER RESPIRATORY TRACT INFECTION [None]
  - PROSTATE CANCER [None]
